FAERS Safety Report 4362509-9 (Version None)
Quarter: 2004Q2

REPORT INFORMATION
  Report Type: 
  Country: None (occurrence: None)
  Receive Date: 20040518
  Receipt Date: 20040507
  Transmission Date: 20050107
  Serious: Yes (Other)
  Sender: FDA-Public Use
  Company Number: US-JNJFOC-20040501371

PATIENT
  Age: 76 Year
  Sex: Female

DRUGS (20)
  1. INFLIXIMAB (INFLIXIMAB, RECOMBINANT) LYOPHILIZED POWDER [Suspect]
     Indication: RHEUMATOID ARTHRITIS
     Dosage: INTRAVENOUS
     Route: 042
     Dates: start: 20020918, end: 20021001
  2. ENBREL [Concomitant]
  3. METHOTREXATE [Concomitant]
  4. ACTONOL (RISEDRONATE SODIUM) [Concomitant]
  5. LANSOPRAZOLE [Concomitant]
  6. LABETALOL HCL [Concomitant]
  7. NORVASC [Concomitant]
  8. VITAMIN B-6 (B-KOMPLEX ^LECIVA^) [Concomitant]
  9. FOLIC ACID [Concomitant]
  10. PREDNISONE [Concomitant]
  11. ASPIRIN [Concomitant]
  12. VITAMIN D [Concomitant]
  13. CALCIUM (CALCIUM) [Concomitant]
  14. FERROUS SULFATE TAB [Concomitant]
  15. GLUCOSAMINE (GLUCOSAMINE) [Concomitant]
  16. ZYRTEC [Concomitant]
  17. LIPITOR [Concomitant]
  18. ALTACE [Concomitant]
  19. CLONIDINE [Concomitant]
  20. LIDODERM (LIDOCAINE) [Concomitant]

REACTIONS (1)
  - SQUAMOUS CELL CARCINOMA OF SKIN [None]
